FAERS Safety Report 7643876-7 (Version None)
Quarter: 2011Q3

REPORT INFORMATION
  Report Type: 
  Country: None (occurrence: None)
  Receive Date: 20110729
  Receipt Date: 20101029
  Transmission Date: 20111222
  Serious: No
  Sender: FDA-Public Use
  Company Number: US-GLAXOSMITHKLINE-A0889710A

PATIENT
  Sex: Female

DRUGS (3)
  1. MAXALT [Concomitant]
  2. IMITREX [Suspect]
     Indication: MIGRAINE
     Route: 048
  3. IMITREX [Suspect]
     Dosage: 6MG AS REQUIRED
     Route: 058

REACTIONS (3)
  - DISSOCIATION [None]
  - HEADACHE [None]
  - DRUG INEFFECTIVE [None]
